FAERS Safety Report 4667235-4 (Version None)
Quarter: 2005Q2

REPORT INFORMATION
  Report Type: 
  Country: None (occurrence: None)
  Receive Date: 20050520
  Receipt Date: 20050223
  Transmission Date: 20051028
  Serious: Yes (Other)
  Sender: FDA-Public Use
  Company Number: US-BRISTOL-MYERS SQUIBB COMPANY-12873675

PATIENT
  Age: 75 Year
  Sex: Male

DRUGS (1)
  1. SINEMET [Suspect]
     Indication: PARKINSON'S DISEASE
     Dosage: DURATION OF THERAPY:  LESS THAN ONE YEAR
     Route: 048
     Dates: start: 20040101

REACTIONS (1)
  - MALIGNANT MELANOMA [None]
